FAERS Safety Report 6444287-2 (Version None)
Quarter: 2009Q4

REPORT INFORMATION
  Report Type: 
  Country: None (occurrence: None)
  Receive Date: 20091118
  Receipt Date: 20091113
  Transmission Date: 20100525
  Serious: No
  Sender: FDA-Public Use
  Company Number: US-B.I. PHARMACEUTICALS,INC./RIDGEFIELD-2009-BP-13275BP

PATIENT
  Sex: Female

DRUGS (12)
  1. SPIRIVA [Suspect]
     Indication: CHRONIC OBSTRUCTIVE PULMONARY DISEASE
     Dosage: 18 MCG
     Route: 055
     Dates: start: 20070101
  2. OXYGEN [Concomitant]
     Indication: CHRONIC OBSTRUCTIVE PULMONARY DISEASE
  3. ADVAIR DISKUS 100/50 [Concomitant]
     Indication: CHRONIC OBSTRUCTIVE PULMONARY DISEASE
  4. LISINOPRIL [Concomitant]
     Indication: HYPERTENSION
  5. LEVOTHYROXINE SODIUM [Concomitant]
     Indication: HYPOTHYROIDISM
  6. NYSTATIN [Concomitant]
     Indication: FUNGAL INFECTION
  7. MORPHINE [Concomitant]
     Indication: ARTHRITIS
  8. ROXICET [Concomitant]
     Indication: ARTHRITIS
  9. METHOCARBAMOL [Concomitant]
     Indication: ARTHRITIS
  10. ALBUTEROL [Concomitant]
     Indication: CHRONIC OBSTRUCTIVE PULMONARY DISEASE
  11. WARFARIN SODIUM [Concomitant]
     Indication: ANTICOAGULANT THERAPY
  12. PRANDIN [Concomitant]
     Indication: DIABETES MELLITUS

REACTIONS (2)
  - FALL [None]
  - MUSCULOSKELETAL PAIN [None]
